FAERS Safety Report 6156813-1 (Version None)
Quarter: 2009Q2

REPORT INFORMATION
  Report Type: 
  Country: None (occurrence: None)
  Receive Date: 20090413
  Receipt Date: 20081117
  Transmission Date: 20091009
  Serious: No
  Sender: FDA-Public Use
  Company Number: 2008BM000223

PATIENT
  Age: 36 Year
  Sex: Male
  Weight: 108.8633 kg

DRUGS (2)
  1. KUVAN [Suspect]
     Indication: PHENYLKETONURIA
     Dosage: 2200 MG;QD;PO
     Route: 048
     Dates: start: 20081111, end: 20081116
  2. TRICOR [Concomitant]

REACTIONS (5)
  - ABDOMINAL PAIN UPPER [None]
  - DARK CIRCLES UNDER EYES [None]
  - DECREASED APPETITE [None]
  - DIARRHOEA [None]
  - MALAISE [None]
